FAERS Safety Report 6986100-0 (Version None)
Quarter: 2010Q3

REPORT INFORMATION
  Report Type: 
  Country: None (occurrence: None)
  Receive Date: 20100915
  Receipt Date: 20100907
  Transmission Date: 20110219
  Serious: Yes (Hospitalization, Other)
  Sender: FDA-Public Use
  Company Number: US-GENENTECH-303711

PATIENT
  Age: 4 Year
  Sex: Male

DRUGS (6)
  1. RITUXIMAB [Suspect]
     Indication: NEPHROTIC SYNDROME
     Dosage: 375 MG/M2, 1/WEEK
     Route: 065
  2. COTRIM [Suspect]
     Indication: NEPHROTIC SYNDROME
     Route: 065
  3. PREDNISONE [Concomitant]
     Indication: NEPHROTIC SYNDROME
     Dosage: 0.5 MG/KG, QD
  4. METHYLPREDNISOLONE [Concomitant]
     Indication: PRODUCT USED FOR UNKNOWN INDICATION
     Route: 042
  5. CYCLOPHOSPHAMIDE [Concomitant]
     Indication: PRODUCT USED FOR UNKNOWN INDICATION
     Route: 048
  6. FK-506 [Concomitant]
     Indication: PRODUCT USED FOR UNKNOWN INDICATION

REACTIONS (5)
  - ANAEMIA [None]
  - COLITIS ULCERATIVE [None]
  - NEPHROTIC SYNDROME [None]
  - VIRAL TEST POSITIVE [None]
  - WEIGHT DECREASED [None]
